FAERS Safety Report 24239803 (Version 1)
Quarter: 2024Q3

REPORT INFORMATION
  Report Type: Spontaneous
  Country: US (occurrence: US)
  Receive Date: 20240822
  Receipt Date: 20240822
  Transmission Date: 20241016
  Serious: No
  Sender: AVADEL CNS PHARMA
  Company Number: US-AVADEL CNS PHARMACEUTICALS, LLC-2024AVA00950

PATIENT
  Sex: Female

DRUGS (47)
  1. LUMRYZ [Suspect]
     Active Substance: SODIUM OXYBATE
     Indication: Narcolepsy
     Dosage: 7.5 G, ONCE NIGHTLY AT BEDTIME
     Route: 048
     Dates: start: 202405
  2. PLAQUENIL [Concomitant]
     Active Substance: HYDROXYCHLOROQUINE SULFATE
  3. MAGNESIUM OXIDE [Concomitant]
     Active Substance: MAGNESIUM OXIDE
  4. XYZAL [Concomitant]
     Active Substance: LEVOCETIRIZINE DIHYDROCHLORIDE
  5. XOPENEX [Concomitant]
     Active Substance: LEVALBUTEROL HYDROCHLORIDE
     Dosage: HFA 45 MCG HFA AER AD
  6. PNV 12-IRON-METHYLFOLATE-DHA [Concomitant]
  7. IBUPROFEN [Concomitant]
     Active Substance: IBUPROFEN
  8. FERROUS SULFATE [Concomitant]
     Active Substance: FERROUS SULFATE
  9. UBIQUINOL [Concomitant]
     Active Substance: UBIQUINOL
  10. QVAR [Concomitant]
     Active Substance: BECLOMETHASONE DIPROPIONATE
     Dosage: QVAR REDIHALER 80 MCG HFA AEROBA
  11. ALBUTEROL SULFATE [Concomitant]
     Active Substance: ALBUTEROL SULFATE
  12. DIPHENHYDRAMINE HYDROCHLORIDE [Concomitant]
     Active Substance: DIPHENHYDRAMINE HYDROCHLORIDE
  13. FAMOTIDINE [Concomitant]
     Active Substance: FAMOTIDINE
  14. CROMOLYN SODIUM [Concomitant]
     Active Substance: CROMOLYN SODIUM
     Dosage: CROMOLYN SODIUM 20 MG/ML ORAL CONC
  15. UBRELVY [Concomitant]
     Active Substance: UBROGEPANT
  16. DEMANNOSE [Concomitant]
     Active Substance: DEMANNOSE
     Dosage: D-MANNOSE 99 % POWDER
  17. LEVOMEFOLATE CALCIUM [Concomitant]
     Active Substance: LEVOMEFOLATE CALCIUM
  18. PROTRIPTYLINE HYDROCHLORIDE [Concomitant]
     Active Substance: PROTRIPTYLINE HYDROCHLORIDE
  19. MONTELUKAST SODIUM [Concomitant]
     Active Substance: MONTELUKAST\MONTELUKAST SODIUM
  20. ADDERALL [Concomitant]
     Active Substance: AMPHETAMINE ASPARTATE\AMPHETAMINE SULFATE\DEXTROAMPHETAMINE SACCHARATE\DEXTROAMPHETAMINE SULFATE
  21. VITAMIN D3 [Concomitant]
     Active Substance: CHOLECALCIFEROL
  22. ASPIRIN [Concomitant]
     Active Substance: ASPIRIN
  23. VITAMIN C [Concomitant]
     Active Substance: ASCORBIC ACID
  24. ACETAMINOPHEN [Concomitant]
     Active Substance: ACETAMINOPHEN
  25. MENAQUINONE 6 [Concomitant]
     Active Substance: MENAQUINONE 6
  26. COENZYME Q10 [Concomitant]
     Active Substance: DIETARY SUPPLEMENT\UBIDECARENONE
     Dosage: COENZYME Q-10 100MG-5 CAPSULE
  27. TRAMADOL HCL [Concomitant]
     Active Substance: TRAMADOL HYDROCHLORIDE
  28. SUNOSI [Concomitant]
     Active Substance: SOLRIAMFETOL
  29. VITAMIN B2 [Concomitant]
     Active Substance: RIBOFLAVIN
  30. QUERCETIN [Concomitant]
     Active Substance: QUERCETIN
  31. PYRIDOSTIGMINE BROMIDE EXTENDED RELEASE [Concomitant]
     Active Substance: PYRIDOSTIGMINE BROMIDE
  32. PROPRANOLOL HYDROCHLORIDE [Concomitant]
     Active Substance: PROPRANOLOL HYDROCHLORIDE
     Dosage: 60 MG, ONCE DAILY, PROPRANOLOL HCL ER 60 MG CAP SA 24H
  33. PROMETHAZINE HYDROCHLORIDE [Concomitant]
     Active Substance: PROMETHAZINE HYDROCHLORIDE
  34. FERROUS GLUCONATE [Concomitant]
     Active Substance: FERROUS GLUCONATE
  35. ONDANSETRON [Concomitant]
     Active Substance: ONDANSETRON
     Dosage: ONDANSETRON ODT 4 MG TAB RAPDIS
  36. BOTOX [Concomitant]
     Active Substance: ONABOTULINUMTOXINA
  37. SLYND [Concomitant]
     Active Substance: DROSPIRENONE
  38. MELOXICAM [Concomitant]
     Active Substance: MELOXICAM
  39. MELATONIN [Concomitant]
     Active Substance: MELATONIN
  40. MAGNESIUM GLYCINATE [Concomitant]
     Active Substance: MAGNESIUM GLYCINATE
  41. LIDOCAINE [Concomitant]
     Active Substance: LIDOCAINE
  42. LEVOCETIRIZINE DIHYDROCHLORIDE [Concomitant]
     Active Substance: LEVOCETIRIZINE DIHYDROCHLORIDE
  43. LEVALBUTEROL HYDROCHLORIDE [Concomitant]
     Active Substance: LEVALBUTEROL HYDROCHLORIDE
  44. KETOTIFEN FUMARATE [Concomitant]
     Active Substance: KETOTIFEN FUMARATE
  45. GABAPENTIN [Concomitant]
     Active Substance: GABAPENTIN
  46. AJOVY [Concomitant]
     Active Substance: FREMANEZUMAB-VFRM
  47. UNSPECIFIED INGREDIENT [Concomitant]
     Active Substance: UNSPECIFIED INGREDIENT

REACTIONS (3)
  - Urinary tract infection [Unknown]
  - Nausea [Recovered/Resolved]
  - Intentional dose omission [Unknown]

NARRATIVE: CASE EVENT DATE: 20240101
